FAERS Safety Report 8182222-X (Version None)
Quarter: 2012Q1

REPORT INFORMATION
  Report Type: 
  Country: None (occurrence: None)
  Receive Date: 20120302
  Receipt Date: 20120223
  Transmission Date: 20120608
  Serious: Yes (Hospitalization, Other)
  Sender: FDA-Public Use
  Company Number: PHHY2012FR015977

PATIENT
  Sex: Male

DRUGS (10)
  1. ACETAMINOPHEN [Concomitant]
  2. NEBIVOLOL [Suspect]
  3. CLOPIDOGREL [Concomitant]
  4. NITROGLYCERIN [Concomitant]
  5. VALSARTAN [Suspect]
     Dosage: 40 MG, QD
     Route: 048
  6. POTASSIUM CHLORIDE [Suspect]
     Dosage: 1 G, PER DAY
  7. ASPIRIN [Concomitant]
  8. TERBINAFINE HCL [Suspect]
     Dosage: 250 MG DAILY
  9. AMIODARONE HCL [Suspect]
     Dosage: 200 MG, 5 DAYS/WEEK
     Dates: start: 20111001, end: 20120120
  10. SIMVASTATIN [Suspect]
     Dosage: 20 MG, DAY

REACTIONS (13)
  - RALES [None]
  - DYSPNOEA [None]
  - ASTHENIA [None]
  - WEIGHT DECREASED [None]
  - JUGULAR VEIN DISTENSION [None]
  - LUNG DISORDER [None]
  - INTERSTITIAL LUNG DISEASE [None]
  - PULMONARY OEDEMA [None]
  - PYREXIA [None]
  - COUGH [None]
  - PULMONARY ALVEOLAR HAEMORRHAGE [None]
  - TACHYPNOEA [None]
  - OEDEMA PERIPHERAL [None]
